FAERS Safety Report 13296352 (Version 3)
Quarter: 2017Q2

REPORT INFORMATION
  Report Type: Spontaneous
  Country: US (occurrence: US)
  Receive Date: 20170304
  Receipt Date: 20170407
  Transmission Date: 20170830
  Serious: No
  Sender: FDA-Public Use
  Company Number: US-LUNDBECK-DKLU2026592

PATIENT
  Sex: Female

DRUGS (3)
  1. NORTHERA [Suspect]
     Active Substance: DROXIDOPA
     Indication: PRODUCT USED FOR UNKNOWN INDICATION
     Dosage: SCHEDULE B (TITRATING)?SCHEDULE C (TITRATING)
     Route: 065
     Dates: start: 20170208
  2. NORTHERA [Suspect]
     Active Substance: DROXIDOPA
     Route: 065
  3. NORTHERA [Suspect]
     Active Substance: DROXIDOPA
     Route: 065

REACTIONS (7)
  - Blood pressure orthostatic [Unknown]
  - Dizziness [Not Recovered/Not Resolved]
  - Pollakiuria [Unknown]
  - Musculoskeletal stiffness [Unknown]
  - Hypertension [Unknown]
  - Fatigue [Unknown]
  - Asthenia [Not Recovered/Not Resolved]
